FAERS Safety Report 6853449-1 (Version None)
Quarter: 2010Q3

REPORT INFORMATION
  Report Type: 
  Country: None (occurrence: None)
  Receive Date: 20100717
  Receipt Date: 20071207
  Transmission Date: 20110219
  Serious: No
  Sender: FDA-Public Use
  Company Number: US-PFIZER INC-2007105060

PATIENT
  Sex: Female

DRUGS (1)
  1. CHANTIX [Suspect]
     Dates: start: 20071201

REACTIONS (3)
  - ACTIVITIES OF DAILY LIVING IMPAIRED [None]
  - HYPERSOMNIA [None]
  - SOMNOLENCE [None]
